FAERS Safety Report 8029072-2 (Version None)
Quarter: 2012Q1

REPORT INFORMATION
  Report Type: 
  Country: None (occurrence: None)
  Receive Date: 20120106
  Receipt Date: 20120102
  Transmission Date: 20120608
  Serious: Yes (Death)
  Sender: FDA-Public Use
  Company Number: US-BAYER-2012-001044

PATIENT
  Age: 36 Year
  Sex: Female

DRUGS (3)
  1. PARACETAMOL + DIPHENHYDRAMINE [Suspect]
     Dosage: UNK
     Route: 048
  2. IBUPROFEN [Suspect]
     Dosage: UNK
     Route: 048
  3. ACETAMINOPHEN [Suspect]
     Dosage: UNK
     Route: 048

REACTIONS (1)
  - TOXICITY TO VARIOUS AGENTS [None]
